FAERS Safety Report 6889939-5 (Version None)
Quarter: 2010Q3

REPORT INFORMATION
  Report Type: 
  Country: None (occurrence: None)
  Receive Date: 20100730
  Receipt Date: 20080623
  Transmission Date: 20110219
  Serious: No
  Sender: FDA-Public Use
  Company Number: US-PFIZER INC-2008053633

PATIENT
  Sex: Male
  Weight: 84.09 kg

DRUGS (7)
  1. LIPITOR [Suspect]
     Indication: BLOOD CHOLESTEROL INCREASED
     Dates: start: 20080616
  2. MESALAZINE [Concomitant]
  3. PROTONIX [Concomitant]
  4. XANAX [Concomitant]
  5. CHONDROITIN/GLUCOSAMINE [Concomitant]
  6. FISH OIL [Concomitant]
  7. CENTRUM [Concomitant]

REACTIONS (2)
  - CHEST PAIN [None]
  - MYALGIA [None]
